FAERS Safety Report 11830016 (Version 1)
Quarter: 2015Q4

REPORT INFORMATION
  Report Type: Report from Study
  Country: RU (occurrence: RU)
  Receive Date: 20151213
  Receipt Date: 20151213
  Transmission Date: 20160305
  Serious: Yes (Hospitalization)
  Sender: FDA-Public Use
  Company Number: PHHO2015RU020231

PATIENT
  Age: 31 Year
  Sex: Female
  Weight: 86 kg

DRUGS (3)
  1. HEXALYSE [Concomitant]
     Indication: PHARYNGITIS
     Dosage: UNK
     Route: 065
     Dates: start: 20130615
  2. GILENYA [Suspect]
     Active Substance: FINGOLIMOD HYDROCHLORIDE
     Indication: MULTIPLE SCLEROSIS
     Dosage: 0.5 MG, QD
     Route: 048
     Dates: start: 20110426
  3. BIOPAROX [Concomitant]
     Indication: PHARYNGITIS
     Dosage: UNK
     Route: 065
     Dates: start: 20150120

REACTIONS (1)
  - Cholecystitis acute [Unknown]

NARRATIVE: CASE EVENT DATE: 20151129
